FAERS Safety Report 8901023 (Version 2)
Quarter: 2012Q4

REPORT INFORMATION
  Report Type: 
  Country: GB (occurrence: GB)
  Receive Date: 20121109
  Receipt Date: 20121211
  Transmission Date: 20130627
  Serious: Yes (Hospitalization)
  Sender: FDA-Public Use
  Company Number: GB-US-EMD SERONO, INC.-7172145

PATIENT
  Sex: Female

DRUGS (3)
  1. SAIZEN [Suspect]
     Indication: DELAYED PUBERTY
     Route: 058
     Dates: start: 20110609
  2. SAIZEN [Suspect]
     Indication: BODY HEIGHT BELOW NORMAL
  3. ANTIBIOTICS [Concomitant]
     Indication: PRODUCT USED FOR UNKNOWN INDICATION

REACTIONS (3)
  - Asthma [Recovering/Resolving]
  - Lung consolidation [Unknown]
  - Infection [Unknown]
